FAERS Safety Report 21170816 (Version 2)
Quarter: 2022Q3

REPORT INFORMATION
  Report Type: Spontaneous
  Country: CH (occurrence: CH)
  Receive Date: 20220804
  Receipt Date: 20220810
  Transmission Date: 20221027
  Serious: Yes (Hospitalization, Other)
  Sender: FDA-Public Use
  Company Number: None

PATIENT
  Age: 35 Year
  Sex: Female

DRUGS (4)
  1. LOPERAMIDE HYDROCHLORIDE [Suspect]
     Active Substance: LOPERAMIDE HYDROCHLORIDE
     Indication: Anxiety disorder
     Dosage: UNK, AS NECESSARY (INSIDIOUSLY)
     Route: 065
  2. LOPERAMIDE HYDROCHLORIDE [Suspect]
     Active Substance: LOPERAMIDE HYDROCHLORIDE
     Indication: Diarrhoea
     Dosage: UNK, BECAME DAILY
     Route: 065
  3. LOPERAMIDE HYDROCHLORIDE [Suspect]
     Active Substance: LOPERAMIDE HYDROCHLORIDE
     Indication: Phobia
     Dosage: 40 MILLIGRAM PER DAY
     Route: 065
  4. LOPERAMIDE HYDROCHLORIDE [Suspect]
     Active Substance: LOPERAMIDE HYDROCHLORIDE
     Dosage: 60 MILLIGRAM PER DAY
     Route: 065

REACTIONS (8)
  - Drug use disorder [Recovered/Resolved]
  - Drug dependence [Recovered/Resolved]
  - Electrocardiogram QT prolonged [Recovered/Resolved]
  - Intentional product misuse [Unknown]
  - Drug abuse [Unknown]
  - Substance use disorder [Recovered/Resolved]
  - Drug withdrawal syndrome [Recovered/Resolved]
  - Off label use [Unknown]
